FAERS Safety Report 6279001-7 (Version None)
Quarter: 2009Q3

REPORT INFORMATION
  Report Type: 
  Country: None (occurrence: None)
  Receive Date: 20090723
  Receipt Date: 20090715
  Transmission Date: 20100115
  Serious: Yes (Hospitalization, Other)
  Sender: FDA-Public Use
  Company Number: PHHO2009FR03104

PATIENT
  Sex: Male
  Weight: 74.5 kg

DRUGS (1)
  1. STI571/CGP57148B T35717+CAPS [Suspect]
     Indication: GASTROINTESTINAL STROMAL TUMOUR
     Dosage: 400 MG/ DAY
     Route: 048
     Dates: start: 20051201, end: 20071124

REACTIONS (8)
  - AMPUTATION OF PENIS [None]
  - EMBOLISM [None]
  - GENITAL LESION [None]
  - LYMPHADENOPATHY [None]
  - MALIGNANT TUMOUR EXCISION [None]
  - METASTASES TO LYMPH NODES [None]
  - PENILE OPERATION [None]
  - PENIS CARCINOMA [None]
